FAERS Safety Report 5825600-3 (Version None)
Quarter: 2008Q3

REPORT INFORMATION
  Report Type: 
  Country: None (occurrence: None)
  Receive Date: 20080723
  Receipt Date: 20080710
  Transmission Date: 20090109
  Serious: Yes (Other)
  Sender: FDA-Public Use
  Company Number: DSU-2008-01052

PATIENT
  Sex: Female

DRUGS (1)
  1. AZOR [Suspect]
     Indication: DRUG USE FOR UNKNOWN INDICATION
     Dosage: 5/20MG (QD), PER ORAL
     Route: 048

REACTIONS (1)
  - LOSS OF CONSCIOUSNESS [None]
